FAERS Safety Report 4929122-3 (Version None)
Quarter: 2006Q1

REPORT INFORMATION
  Report Type: 
  Country: None (occurrence: None)
  Receive Date: 20060301
  Receipt Date: 20060201
  Transmission Date: 20060701
  Serious: Yes (Hospitalization, Disabling)
  Sender: FDA-Public Use
  Company Number: PR-MERCK-0602USA00300

PATIENT
  Age: 52 Year
  Sex: Female
  Weight: 55 kg

DRUGS (3)
  1. VIOXX [Suspect]
     Indication: MYALGIA
     Route: 048
     Dates: start: 19990101, end: 20030101
  2. VIOXX [Suspect]
     Route: 048
     Dates: start: 19990101, end: 20030101
  3. VIOXX [Suspect]
     Route: 048
     Dates: start: 19990101, end: 20030101

REACTIONS (11)
  - ADVERSE EVENT [None]
  - ANGINA PECTORIS [None]
  - ANGINA UNSTABLE [None]
  - CHEST PAIN [None]
  - ELECTROCARDIOGRAM ST SEGMENT DEPRESSION [None]
  - ISCHAEMIA [None]
  - MYOCARDIAL ISCHAEMIA [None]
  - OVERDOSE [None]
  - PRESCRIBED OVERDOSE [None]
  - SHOULDER DEFORMITY [None]
  - VENOUS OCCLUSION [None]
